FAERS Safety Report 8861558 (Version 1)
Quarter: 2012Q4

REPORT INFORMATION
  Report Type: Spontaneous
  Country: US (occurrence: None)
  Receive Date: 20121025
  Receipt Date: 20121025
  Transmission Date: 20130627
  Serious: Yes (Hospitalization, Other)
  Sender: FDA-Public Use
  Company Number: None

PATIENT
  Age: 68 Year
  Sex: Male

DRUGS (1)
  1. ATENOLOL [Suspect]
     Dosage: 25 mg PO daily
     Route: 048
     Dates: end: 20120502

REACTIONS (5)
  - Dizziness [None]
  - Nausea [None]
  - Bradycardia [None]
  - Hypotension [None]
  - Chest pain [None]
